FAERS Safety Report 11044058 (Version 1)
Quarter: 2015Q2

REPORT INFORMATION
  Report Type: Spontaneous
  Country: US (occurrence: US)
  Receive Date: 20150417
  Receipt Date: 20150417
  Transmission Date: 20150821
  Serious: No
  Sender: FDA-Public Use
  Company Number: US-PFIZER INC-2015129118

PATIENT
  Sex: Female
  Weight: 61 kg

DRUGS (6)
  1. DESYREL [Suspect]
     Active Substance: TRAZODONE HYDROCHLORIDE
     Dosage: UNK
     Route: 048
  2. DRAMAMINE [Suspect]
     Active Substance: DIMENHYDRINATE
     Indication: NAUSEA
     Dosage: UNK
     Route: 048
  3. NARDIL [Suspect]
     Active Substance: PHENELZINE SULFATE
     Indication: MIGRAINE
     Dosage: UNK
     Route: 048
  4. VISTARIL [Suspect]
     Active Substance: HYDROXYZINE PAMOATE
     Indication: VOMITING
     Dosage: UNK
     Route: 048
  5. DRAMAMINE [Suspect]
     Active Substance: DIMENHYDRINATE
     Dosage: UNK
  6. MOTRIN [Suspect]
     Active Substance: IBUPROFEN
     Indication: MUSCLE SPASMS
     Dosage: UNK
     Route: 048
     Dates: end: 1970

REACTIONS (2)
  - Drug hypersensitivity [Unknown]
  - Malaise [Unknown]
